FAERS Safety Report 16695266 (Version 1)
Quarter: 2019Q3

REPORT INFORMATION
  Report Type: Spontaneous
  Country: IT (occurrence: IT)
  Receive Date: 20190813
  Receipt Date: 20190813
  Transmission Date: 20191004
  Serious: Yes (Other)
  Sender: FDA-Public Use
  Company Number: IT-ACCORD-151145

PATIENT
  Age: 48 Year
  Sex: Female
  Weight: 54 kg

DRUGS (2)
  1. ESCITALOPRAM [Suspect]
     Active Substance: ESCITALOPRAM OXALATE
     Route: 048
     Dates: start: 20190729, end: 20190729
  2. EN [Suspect]
     Active Substance: DELORAZEPAM
     Route: 048
     Dates: start: 20190729, end: 20190729

REACTIONS (1)
  - Drug abuse [Unknown]

NARRATIVE: CASE EVENT DATE: 20190729
